FAERS Safety Report 14814009 (Version 1)
Quarter: 2018Q2

REPORT INFORMATION
  Report Type: Spontaneous
  Country: FR (occurrence: FR)
  Receive Date: 20180426
  Receipt Date: 20180426
  Transmission Date: 20180711
  Serious: Yes (Other)
  Sender: FDA-Public Use
  Company Number: FR-MERCK KGAA-2046588

PATIENT
  Age: 49 Year
  Sex: Female

DRUGS (2)
  1. NOVOTHYROX [Suspect]
     Active Substance: LEVOTHYROXINE SODIUM
     Indication: HYPOTHYROIDISM
  2. NOVOTHYROX [Suspect]
     Active Substance: LEVOTHYROXINE SODIUM
     Indication: GOITRE

REACTIONS (47)
  - Vision blurred [None]
  - Disturbance in attention [None]
  - Emotional distress [None]
  - Blood thyroid stimulating hormone increased [None]
  - Dizziness [None]
  - Tachycardia [None]
  - Vomiting [None]
  - Back pain [None]
  - Abdominal distension [None]
  - Psychiatric symptom [None]
  - Libido decreased [None]
  - Vitamin D decreased [None]
  - Appetite disorder [None]
  - Somatic symptom disorder [None]
  - Nausea [None]
  - Constipation [None]
  - Feeling abnormal [None]
  - Fatigue [None]
  - Headache [None]
  - Emotional disorder [None]
  - Muscle spasms [None]
  - Palpitations [None]
  - Initial insomnia [None]
  - Arthralgia [None]
  - Pain [None]
  - Nightmare [None]
  - Confusional state [None]
  - Anxiety [None]
  - Loss of consciousness [None]
  - Tinnitus [None]
  - Presyncope [None]
  - Myalgia [None]
  - Sleep disorder [None]
  - Dysphagia [None]
  - Apathy [None]
  - Asthenia [None]
  - Fear [None]
  - Loss of personal independence in daily activities [None]
  - Decreased activity [None]
  - Depression [None]
  - Temperature intolerance [None]
  - Dyspepsia [None]
  - Pruritus generalised [None]
  - Alopecia [None]
  - Mood swings [None]
  - Depressed mood [None]
  - Malaise [None]

NARRATIVE: CASE EVENT DATE: 201704
